FAERS Safety Report 5026609-2 (Version None)
Quarter: 2006Q2

REPORT INFORMATION
  Report Type: 
  Country: None (occurrence: None)
  Receive Date: 20060613
  Receipt Date: 20060613
  Transmission Date: 20061013
  Serious: Yes (Hospitalization)
  Sender: FDA-Public Use
  Company Number: None

PATIENT
  Sex: Female

DRUGS (9)
  1. TOPAMAX [Suspect]
     Indication: SCHIZOPHRENIA
     Dosage: 100 MG BID PO
     Route: 048
     Dates: end: 20060525
  2. ALESSE [Concomitant]
  3. CALCIUM + D [Concomitant]
  4. DOCUSATE [Concomitant]
  5. ESOMEPRAZOLE [Concomitant]
  6. OLANZAPINE [Concomitant]
  7. PROPRANOLOL [Concomitant]
  8. QUETIAPINE FUMARATE [Concomitant]
  9. TRAZODONE HCL [Concomitant]

REACTIONS (4)
  - AGGRESSION [None]
  - COGNITIVE DISORDER [None]
  - DELIRIUM [None]
  - METABOLIC ACIDOSIS [None]
